APPROVED DRUG PRODUCT: DESOXIMETASONE
Active Ingredient: DESOXIMETASONE
Strength: 0.25%
Dosage Form/Route: CREAM;TOPICAL
Application: A209595 | Product #001
Applicant: COSETTE PHARMACEUTICALS INC
Approved: Mar 4, 2020 | RLD: No | RS: No | Type: DISCN